FAERS Safety Report 20317088 (Version 8)
Quarter: 2022Q4

REPORT INFORMATION
  Report Type: Report from Study
  Country: JP (occurrence: JP)
  Receive Date: 20220110
  Receipt Date: 20221021
  Transmission Date: 20230112
  Serious: Yes (Death, Hospitalization, Other)
  Sender: FDA-Public Use
  Company Number: JP-BRISTOL-MYERS SQUIBB COMPANY-BMS-2022-000166

PATIENT
  Age: 76 Year
  Sex: Male
  Weight: 54 kg

DRUGS (4)
  1. IPILIMUMAB [Suspect]
     Active Substance: IPILIMUMAB
     Indication: Non-small cell lung cancer recurrent
     Dosage: 54 MILLIGRAM
     Route: 041
     Dates: start: 20210812, end: 20210812
  2. NIVOLUMAB [Suspect]
     Active Substance: NIVOLUMAB
     Indication: Non-small cell lung cancer recurrent
     Dosage: 360 MILLIGRAM
     Route: 041
     Dates: start: 20210812, end: 20210812
  3. CARBOPLATIN [Suspect]
     Active Substance: CARBOPLATIN
     Indication: Non-small cell lung cancer recurrent
     Dosage: 322 MILLIGRAM
     Route: 065
     Dates: start: 20210812, end: 20210812
  4. PACLITAXEL [Suspect]
     Active Substance: PACLITAXEL
     Indication: Non-small cell lung cancer recurrent
     Dosage: 236 MILLIGRAM
     Route: 065
     Dates: start: 20210812, end: 20210812

REACTIONS (3)
  - Cerebral infarction [Not Recovered/Not Resolved]
  - Oesophageal ulcer [Fatal]
  - Oesophageal ulcer haemorrhage [Fatal]

NARRATIVE: CASE EVENT DATE: 20210801
